FAERS Safety Report 6347873-3 (Version None)
Quarter: 2009Q3

REPORT INFORMATION
  Report Type: 
  Country: None (occurrence: None)
  Receive Date: 20090910
  Receipt Date: 20090902
  Transmission Date: 20100115
  Serious: Yes (Life-Threatening, Hospitalization)
  Sender: FDA-Public Use
  Company Number: IT-AMGEN-UK355368

PATIENT
  Sex: Female

DRUGS (3)
  1. VECTIBIX [Suspect]
     Indication: COLORECTAL CANCER
     Route: 065
     Dates: end: 20090615
  2. FLUOROURACIL [Suspect]
     Route: 065
     Dates: end: 20090622
  3. OXALIPLATIN [Suspect]
     Route: 065
     Dates: end: 20090622

REACTIONS (1)
  - DIARRHOEA [None]
